FAERS Safety Report 24249106 (Version 1)
Quarter: 2024Q3

REPORT INFORMATION
  Report Type: Spontaneous
  Country: US (occurrence: None)
  Receive Date: 20240823
  Receipt Date: 20240823
  Transmission Date: 20241017
  Serious: Yes (Hospitalization)
  Sender: Public
  Company Number: None

PATIENT
  Sex: Male

DRUGS (10)
  1. MYCOPHENOLIC ACID [Suspect]
     Active Substance: MYCOPHENOLIC ACID
     Indication: Renal transplant
     Dosage: FREQ: TAKE 4 TABLETS (720 MG) BY MOUTH TWO TIMES DAILY.
     Route: 048
     Dates: start: 20240703
  2. ATORVASTATIN [Concomitant]
     Active Substance: ATORVASTATIN
  3. AURYXIA [Concomitant]
     Active Substance: TETRAFERRIC TRICITRATE DECAHYDRATE
  4. BUMETANIDE [Concomitant]
     Active Substance: BUMETANIDE
  5. CLOTRIMAZOLE [Concomitant]
     Active Substance: CLOTRIMAZOLE
  6. ENVARSUS XR [Concomitant]
     Active Substance: TACROLIMUS
  7. FAMOTIDINE [Concomitant]
     Active Substance: FAMOTIDINE
  8. LACTULOSE [Concomitant]
     Active Substance: LACTULOSE
  9. LIPITOR [Concomitant]
     Active Substance: ATORVASTATIN CALCIUM
  10. LOKELMA [Concomitant]
     Active Substance: SODIUM ZIRCONIUM CYCLOSILICATE

REACTIONS (4)
  - Anaemia [None]
  - Hypotension [None]
  - Feeling cold [None]
  - Adverse drug reaction [None]
